FAERS Safety Report 7553583-7 (Version None)
Quarter: 2011Q2

REPORT INFORMATION
  Report Type: 
  Country: None (occurrence: None)
  Receive Date: 20110617
  Receipt Date: 20110608
  Transmission Date: 20111010
  Serious: Yes (Death, Hospitalization, Other)
  Sender: FDA-Public Use
  Company Number: DE-JNJFOC-20110501967

PATIENT
  Sex: Male

DRUGS (9)
  1. CARMEN [Concomitant]
     Route: 065
  2. SIMVASTATIN [Concomitant]
     Route: 065
  3. DOXORUBICIN HCL [Suspect]
     Indication: MYCOSIS FUNGOIDES
     Route: 042
     Dates: start: 20110331
  4. CARVEDILOL [Concomitant]
     Route: 065
  5. ALLOPURINOL [Concomitant]
     Route: 065
  6. ASPIRIN [Concomitant]
     Route: 065
  7. RAMIPRIL [Concomitant]
     Route: 065
  8. ACTRAPID [Concomitant]
     Route: 065
  9. TORSEMIDE [Concomitant]
     Route: 065

REACTIONS (3)
  - LEUKOCYTOSIS [None]
  - HEPATITIS CHOLESTATIC [None]
  - DEATH [None]
